FAERS Safety Report 6602008-4 (Version None)
Quarter: 2010Q1

REPORT INFORMATION
  Report Type: 
  Country: None (occurrence: None)
  Receive Date: 20100225
  Receipt Date: 20100219
  Transmission Date: 20100710
  Serious: Yes (Other)
  Sender: FDA-Public Use
  Company Number: ZA-JNJFOC-20100209259

PATIENT
  Sex: Female
  Weight: 52 kg

DRUGS (1)
  1. REVELLEX [Suspect]
     Indication: CROHN'S DISEASE
     Route: 042

REACTIONS (1)
  - TUBERCULOSIS [None]
